FAERS Safety Report 11170438 (Version 2)
Quarter: 2015Q2

REPORT INFORMATION
  Report Type: Spontaneous
  Country: US (occurrence: US)
  Receive Date: 20150608
  Receipt Date: 20150617
  Transmission Date: 20150821
  Serious: Yes (Other)
  Sender: FDA-Public Use
  Company Number: US-LPDUSPRD-20150386

PATIENT
  Age: 2 Year
  Sex: Male

DRUGS (1)
  1. EPINEPHRINE INJECTION, USP (1071-25) [Suspect]
     Active Substance: EPINEPHRINE
     Dosage: TITRATED TO 0.12UG/KG/MINUTE
     Route: 065

REACTIONS (1)
  - Treatment failure [Unknown]
